FAERS Safety Report 11419895 (Version 2)
Quarter: 2015Q3

REPORT INFORMATION
  Report Type: Spontaneous
  Country: IT (occurrence: IT)
  Receive Date: 20150826
  Receipt Date: 20150831
  Transmission Date: 20151125
  Serious: Yes (Hospitalization, Other)
  Sender: FDA-Public Use
  Company Number: IT-TEVA-588928ISR

PATIENT
  Age: 25 Year
  Sex: Male

DRUGS (4)
  1. ALEMTUZUMAB [Suspect]
     Active Substance: ALEMTUZUMAB
     Indication: RELAPSING-REMITTING MULTIPLE SCLEROSIS
     Dosage: 12 MG
     Route: 042
  2. METHYLPREDNISOLONE. [Suspect]
     Active Substance: METHYLPREDNISOLONE
     Indication: INFUSION RELATED REACTION
     Dosage: 1 GRAM DAILY;
  3. CHLORPHENIRAMINE MALEATE. [Suspect]
     Active Substance: CHLORPHENIRAMINE MALEATE
     Indication: INFUSION RELATED REACTION
     Dosage: 10 MILLIGRAM DAILY;
  4. ACICLOVIR [Suspect]
     Active Substance: ACYCLOVIR
     Indication: HERPES VIRUS INFECTION
     Dosage: 400 MILLIGRAM DAILY;
     Route: 048

REACTIONS (1)
  - Renal tubular disorder [Recovered/Resolved]
